FAERS Safety Report 7421896-5 (Version None)
Quarter: 2011Q2

REPORT INFORMATION
  Report Type: 
  Country: None (occurrence: None)
  Receive Date: 20110418
  Receipt Date: 20110405
  Transmission Date: 20111010
  Serious: Yes (Death)
  Sender: FDA-Public Use
  Company Number: CA-ELI_LILLY_AND_COMPANY-CA201104001509

PATIENT
  Sex: Female

DRUGS (2)
  1. PAXYL [Concomitant]
  2. PROZAC [Suspect]
     Indication: DEPRESSION
     Dosage: UNK, UNKNOWN

REACTIONS (1)
  - COMPLETED SUICIDE [None]
